FAERS Safety Report 21837420 (Version 1)
Quarter: 2023Q1

REPORT INFORMATION
  Report Type: Spontaneous
  Country: US (occurrence: None)
  Receive Date: 20230106
  Receipt Date: 20230106
  Transmission Date: 20230418
  Serious: Yes (Hospitalization, Other)
  Sender: FDA-Public Use
  Company Number: None

PATIENT
  Age: 32 Year
  Sex: Female
  Weight: 70.65 kg

DRUGS (8)
  1. CHLORHEXIDINE GLUCONATE [Suspect]
     Active Substance: CHLORHEXIDINE GLUCONATE
     Indication: Infection prophylaxis
  2. LEVOAUBUTEROL [Concomitant]
  3. EPIPIN [Concomitant]
  4. DEVICE [Concomitant]
     Active Substance: DEVICE
  5. ZYRTEC [Concomitant]
     Active Substance: CETIRIZINE HYDROCHLORIDE
  6. FLONASE [Concomitant]
     Active Substance: FLUTICASONE PROPIONATE
  7. FLO VITAMIN [Concomitant]
  8. OLLY STRESS VITAMIN WITH ASHWAGONDA [Concomitant]

REACTIONS (1)
  - Urticaria [None]

NARRATIVE: CASE EVENT DATE: 20230105
